FAERS Safety Report 4869722-2 (Version None)
Quarter: 2005Q4

REPORT INFORMATION
  Report Type: 
  Country: None (occurrence: None)
  Receive Date: 20051223
  Receipt Date: 20051214
  Transmission Date: 20060501
  Serious: Yes (Hospitalization)
  Sender: FDA-Public Use
  Company Number: B0403634A

PATIENT
  Age: 59 Year
  Sex: Female

DRUGS (1)
  1. ZOVIRAX [Suspect]
     Indication: HERPES ZOSTER
     Dosage: 250 MG/ THREE TIMES PER DAY / INTRA

REACTIONS (13)
  - AGITATION [None]
  - BLOOD PRESSURE INCREASED [None]
  - BLOOD SODIUM DECREASED [None]
  - DRUG TOXICITY [None]
  - ELECTROENCEPHALOGRAM ABNORMAL [None]
  - HAEMODIALYSIS [None]
  - HALLUCINATION [None]
  - HEART RATE INCREASED [None]
  - INCOHERENT [None]
  - LETHARGY [None]
  - NEUROTOXICITY [None]
  - RENAL IMPAIRMENT [None]
  - SOMNOLENCE [None]
